FAERS Safety Report 8902558 (Version 2)
Quarter: 2012Q4

REPORT INFORMATION
  Report Type: Report from Study
  Country: FR (occurrence: FR)
  Receive Date: 20121112
  Receipt Date: 20121122
  Transmission Date: 20130627
  Serious: Yes (Life-Threatening, Hospitalization, Other)
  Sender: FDA-Public Use
  Company Number: FR-ACTELION-A-CH2012-73842

PATIENT
  Age: 24 Year
  Sex: Male
  Weight: 50 kg

DRUGS (3)
  1. ZAVESCA [Suspect]
     Indication: NIEMANN-PICK DISEASE
     Dosage: 200 mg, tid
     Route: 048
     Dates: start: 20100401
  2. LAMOTRIGIN [Concomitant]
  3. MIRTAZAPINE [Concomitant]

REACTIONS (2)
  - Pneumonia aspiration [Recovered/Resolved with Sequelae]
  - Gastrostomy [Recovered/Resolved with Sequelae]
